FAERS Safety Report 4777593-8 (Version None)
Quarter: 2005Q3

REPORT INFORMATION
  Report Type: 
  Country: None (occurrence: None)
  Receive Date: 20050921
  Receipt Date: 20050908
  Transmission Date: 20060218
  Serious: Yes (Hospitalization)
  Sender: FDA-Public Use
  Company Number: 2005US001285

PATIENT
  Age: 18 Year
  Sex: Male
  Weight: 83.3 kg

DRUGS (7)
  1. PROGRAF [Suspect]
     Indication: PROPHYLAXIS AGAINST TRANSPLANT REJECTION
     Dosage: 5.00 MG
  2. ZENAPAX [Suspect]
     Indication: PROPHYLAXIS AGAINST TRANSPLANT REJECTION
  3. AMLODIPINE [Concomitant]
  4. PANTOPRAZOLE SODIUM [Concomitant]
  5. SODIUM BICARBONATE IN PLASTIC CONTAINER [Concomitant]
  6. POLYSACCHARIDE-IRON COMPLEX (POLYSACCHARIDE-IRON COMPLEX) [Concomitant]
  7. MYCOPHENOLATE MOFETIL (MYCOPHENOLATE MOFETIL) [Concomitant]

REACTIONS (1)
  - PYELONEPHRITIS ACUTE [None]
